FAERS Safety Report 23365138 (Version 1)
Quarter: 2024Q1

REPORT INFORMATION
  Report Type: Other
  Country: US (occurrence: None)
  Receive Date: 20240104
  Receipt Date: 20240104
  Transmission Date: 20240410
  Serious: Yes (Other)
  Sender: FDA-Public Use
  Company Number: US-ROCHE-3484274

PATIENT

DRUGS (3)
  1. TRASTUZUMAB [Suspect]
     Active Substance: TRASTUZUMAB
     Indication: Breast cancer metastatic
     Route: 042
  2. TRASTUZUMAB [Suspect]
     Active Substance: TRASTUZUMAB
     Route: 042
  3. IBRUTINIB [Suspect]
     Active Substance: IBRUTINIB
     Indication: Breast cancer metastatic
     Dosage: OR 560 MG PLUS
     Route: 048

REACTIONS (5)
  - Alanine aminotransferase increased [Unknown]
  - Contusion [Unknown]
  - Rash [Unknown]
  - Fatigue [Unknown]
  - Thrombocytopenia [Unknown]
